FAERS Safety Report 18821459 (Version 1)
Quarter: 2021Q1

REPORT INFORMATION
  Report Type: Spontaneous
  Country: US (occurrence: US)
  Receive Date: 20210202
  Receipt Date: 20210202
  Transmission Date: 20210419
  Serious: No
  Sender: FDA-Public Use
  Company Number: US-JNJFOC-20210140665

PATIENT
  Sex: Male

DRUGS (1)
  1. MENS ROGAINE EXTRA STRENGTH [Suspect]
     Active Substance: MINOXIDIL
     Indication: ALOPECIA
     Dosage: AS DIRECTED ONCE?PRODUCT LAST ADMINISTRATION DATE REPORTED TO BE 19?JAN?2021
     Route: 065
     Dates: start: 20210118, end: 20210119

REACTIONS (2)
  - Hypersensitivity [Unknown]
  - Eye swelling [Unknown]

NARRATIVE: CASE EVENT DATE: 20210119
